FAERS Safety Report 10266904 (Version 1)
Quarter: 2014Q2

REPORT INFORMATION
  Report Type: Spontaneous
  Country: US (occurrence: US)
  Receive Date: 20140630
  Receipt Date: 20140630
  Transmission Date: 20141212
  Serious: No
  Sender: FDA-Public Use
  Company Number: US-BIOGENIDEC-2014BI037035

PATIENT
  Age: 61 Year
  Sex: Female

DRUGS (6)
  1. TECFIDERA [Suspect]
     Indication: MULTIPLE SCLEROSIS
     Route: 048
  2. AZELASTINE HCL [Concomitant]
  3. EVISTA [Concomitant]
  4. MAXALT [Concomitant]
  5. PRILOSEC [Concomitant]
  6. VITAMIN D [Concomitant]

REACTIONS (4)
  - Irritable bowel syndrome [Unknown]
  - Incontinence [Unknown]
  - Diarrhoea [Unknown]
  - Abdominal pain [Unknown]
